FAERS Safety Report 16556921 (Version 2)
Quarter: 2019Q3

REPORT INFORMATION
  Report Type: Report from Study
  Country: None (occurrence: US)
  Receive Date: 20190711
  Receipt Date: 20190717
  Transmission Date: 20191004
  Serious: Yes (Hospitalization)
  Sender: FDA-Public Use
  Company Number: US-ABBVIE-19K-163-2849075-00

PATIENT
  Sex: Female

DRUGS (3)
  1. VENCLEXTA [Suspect]
     Active Substance: VENETOCLAX
     Indication: ACUTE MYELOID LEUKAEMIA
     Dosage: TOOK 1 TABLET BY MOUTH ON 1ST DAY OF CHEMO
     Route: 048
  2. VENCLEXTA [Suspect]
     Active Substance: VENETOCLAX
     Dosage: INCREASED TO 2 TABLETS ON DAY 2 OF CHEMO BY MOUTH
     Route: 048
  3. VENCLEXTA [Suspect]
     Active Substance: VENETOCLAX
     Dosage: INCREASED TO 4 TABLETS BY MOUTH ON DAY 3 AND THEREAFTER
     Route: 048

REACTIONS (9)
  - Gait inability [Unknown]
  - Pneumonia [Unknown]
  - Arrhythmia [Unknown]
  - Acute myeloid leukaemia [Unknown]
  - Coma [Unknown]
  - Tremor [Unknown]
  - Hepatic function abnormal [Unknown]
  - Hypersensitivity [Unknown]
  - Hypoacusis [Unknown]
